FAERS Safety Report 16765234 (Version 1)
Quarter: 2019Q3

REPORT INFORMATION
  Report Type: Spontaneous
  Country: US (occurrence: US)
  Receive Date: 20190903
  Receipt Date: 20190903
  Transmission Date: 20191005
  Serious: No
  Sender: FDA-Public Use
  Company Number: US-BRISTOL-MYERS SQUIBB COMPANY-BMS-2019-085232

PATIENT
  Sex: Male
  Weight: 106.59 kg

DRUGS (1)
  1. ELIQUIS [Suspect]
     Active Substance: APIXABAN
     Indication: CARDIAC VALVE DISEASE
     Dosage: 5 MILLIGRAM, BID
     Route: 048
     Dates: start: 201905

REACTIONS (2)
  - Intentional product use issue [Unknown]
  - Renal impairment [Unknown]
